FAERS Safety Report 17863630 (Version 1)
Quarter: 2020Q2

REPORT INFORMATION
  Report Type: Spontaneous
  Country: US (occurrence: JP)
  Receive Date: 20200604
  Receipt Date: 20200604
  Transmission Date: 20200714
  Serious: Yes (Hospitalization)
  Sender: FDA-Public Use
  Company Number: JP-ALLERGAN-2021791US

PATIENT
  Sex: Male

DRUGS (17)
  1. RABEPRAZOLE [Concomitant]
     Active Substance: RABEPRAZOLE
     Route: 048
  2. NESINA [Concomitant]
     Active Substance: ALOGLIPTIN BENZOATE
     Route: 048
  3. CORTRIL [Concomitant]
     Active Substance: HYDROCORTISONE
  4. TARLIGE [Concomitant]
     Active Substance: MIROGABALIN BESYLATE
     Route: 048
  5. SILODOSIN - BP [Suspect]
     Active Substance: SILODOSIN
     Indication: PRODUCT USED FOR UNKNOWN INDICATION
  6. BETANIS [Concomitant]
     Active Substance: MIRABEGRON
     Route: 048
  7. PREDNISOLONE. [Concomitant]
     Active Substance: PREDNISOLONE
  8. METGLUCO [Concomitant]
     Active Substance: METFORMIN HYDROCHLORIDE
     Route: 048
  9. SENNOSIDE [Concomitant]
     Active Substance: SENNOSIDES
     Route: 048
  10. ALFACALCIDOL [Concomitant]
     Active Substance: ALFACALCIDOL
     Route: 048
  11. MINIRINMELT OD [Concomitant]
     Dosage: 60 ?G, QD
     Route: 048
  12. EPADEL [Concomitant]
     Active Substance: ICOSAPENT
     Route: 048
  13. BEPOTASTINE BESILATE [Concomitant]
     Active Substance: BEPOTASTINE BESYLATE
     Route: 048
  14. PREDONINE [Concomitant]
     Active Substance: PREDNISOLONE
  15. ADALAT [Concomitant]
     Active Substance: NIFEDIPINE
     Route: 048
  16. TRAMCET [Concomitant]
     Active Substance: ACETAMINOPHEN\TRAMADOL
     Route: 048
  17. NAUZELIN [Concomitant]
     Active Substance: DOMPERIDONE

REACTIONS (1)
  - Compression fracture [Unknown]
